FAERS Safety Report 6523873-5 (Version None)
Quarter: 2009Q4

REPORT INFORMATION
  Report Type: 
  Country: None (occurrence: None)
  Receive Date: 20091231
  Receipt Date: 20091222
  Transmission Date: 20100525
  Serious: Yes (Other)
  Sender: FDA-Public Use
  Company Number: US-ABBOTT-09P-163-0616228-00

PATIENT
  Sex: Male

DRUGS (2)
  1. HUMIRA [Suspect]
     Indication: CROHN'S DISEASE
     Dosage: UNKNOWN DOSE
  2. HUMIRA [Suspect]
     Dosage: LOADING DOSE

REACTIONS (4)
  - CROHN'S DISEASE [None]
  - NAUSEA [None]
  - VISION BLURRED [None]
  - VOMITING [None]
